FAERS Safety Report 11982355 (Version 2)
Quarter: 2016Q1

REPORT INFORMATION
  Report Type: Spontaneous
  Country: IT (occurrence: IT)
  Receive Date: 20160201
  Receipt Date: 20160317
  Transmission Date: 20160526
  Serious: Yes (Hospitalization)
  Sender: FDA-Public Use
  Company Number: IT-ACCORD-033604

PATIENT
  Age: 71 Year
  Sex: Male

DRUGS (5)
  1. FLUOROURACIL ACCORD [Suspect]
     Active Substance: FLUOROURACIL
     Indication: ADENOCARCINOMA OF COLON
     Dosage: STRENGTH: 50 MG/ML??THE PATIENT RECEIVED FLUOROURACIL TILL 26-AUG-2015 AND SUBSEQUENTLY WITHDRAWN.
     Route: 041
     Dates: start: 20150603
  2. CALCIUM LEVOFOLINATE TEVA [Concomitant]
     Active Substance: LEVOLEUCOVORIN CALCIUM
     Dosage: STRENGTH: 175 MG
     Route: 042
     Dates: start: 20150603, end: 20150826
  3. IRINOTECAN HOSPIRA [Suspect]
     Active Substance: IRINOTECAN
     Indication: ADENOCARCINOMA OF COLON
     Dosage: STRENGTH: 20 MG/ML
     Route: 041
     Dates: start: 20150603
  4. IRINOTECAN [Suspect]
     Active Substance: IRINOTECAN
     Indication: ADENOCARCINOMA OF COLON
     Dosage: PATIENT RECEIVED IRINOTECAN TILL 26-AUG-2015 AND SUBSEQUENTLY WITHDRAWN AND THAN TILL 26-OCT-2015.
     Route: 041
     Dates: start: 20150603
  5. ZALTRAP [Suspect]
     Active Substance: ZIV-AFLIBERCEPT
     Indication: ADENOCARCINOMA OF COLON
     Dosage: SANOFI-AVENTIS GROUPE.?DURATION 174 DAYS.
     Route: 041
     Dates: start: 20150603

REACTIONS (3)
  - Haemorrhoids [Recovered/Resolved]
  - Asthenia [Unknown]
  - Sepsis [Recovered/Resolved]

NARRATIVE: CASE EVENT DATE: 20150810
